FAERS Safety Report 21585899 (Version 4)
Quarter: 2022Q4

REPORT INFORMATION
  Report Type: Report from Study
  Country: DK (occurrence: DK)
  Receive Date: 20221111
  Receipt Date: 20221215
  Transmission Date: 20230113
  Serious: Yes (Hospitalization)
  Sender: FDA-Public Use
  Company Number: DK-KARYOPHARM-2022KPT001345

PATIENT
  Age: 82 Year
  Sex: Male
  Weight: 74.7 kg

DRUGS (12)
  1. SELINEXOR [Suspect]
     Active Substance: SELINEXOR
     Indication: Plasma cell myeloma
     Dosage: 40 MG, WEEKLY ON DAYS 1,8, 15, AND 22
     Route: 048
     Dates: start: 20221013
  2. LENALIDOMIDE [Suspect]
     Active Substance: LENALIDOMIDE
     Indication: Plasma cell myeloma
     Dosage: 10 MG, QD DAYS 1-21
     Route: 048
     Dates: start: 20221014, end: 20221103
  3. DEXAMETHASONE [Suspect]
     Active Substance: DEXAMETHASONE
     Indication: Plasma cell myeloma
     Dosage: 20 MG, ON DAYS 1 AND 2, 8 AND 9, AND 15 AND 16 EVERY 28 DAYS
     Route: 048
     Dates: start: 20221013, end: 20221104
  4. ACYCLOVIR [Concomitant]
     Active Substance: ACYCLOVIR
     Indication: Prophylaxis
     Dosage: 400 MG, QD
     Route: 048
     Dates: start: 20221013
  5. UNIKALK SILVER [Concomitant]
     Indication: Osteoporosis prophylaxis
     Dosage: 1 TABLET, QD
     Route: 048
     Dates: start: 20221013
  6. GANGIDEN [Concomitant]
     Indication: Constipation
     Dosage: 1 POWDER FOR ORAL SOLUTION, PRN; MAX 3 TIMES PER DAY
     Route: 048
     Dates: start: 20220910
  7. DICLOXACILLIN [Concomitant]
     Active Substance: DICLOXACILLIN
     Indication: Infection
     Dosage: 1000 MG, QID
     Route: 048
     Dates: start: 20221007, end: 20221102
  8. DICLOXACILLIN [Concomitant]
     Active Substance: DICLOXACILLIN
     Dosage: 1000 MG, QD
     Route: 048
     Dates: start: 20221103, end: 20221103
  9. FRAGMIN [Concomitant]
     Active Substance: DALTEPARIN SODIUM
     Indication: Thrombosis prophylaxis
     Dosage: 5000 IU, QD
     Dates: start: 20221013
  10. PANTOPRAZOLE [Concomitant]
     Active Substance: PANTOPRAZOLE
     Indication: Prophylaxis against gastrointestinal ulcer
     Dosage: 0.025 DOSAGE FORM, IN THE MORNING ON DAYS WHEN DEXAMETHASONE IS TAKEN
     Route: 048
     Dates: start: 20221013
  11. EMEND [Concomitant]
     Active Substance: APREPITANT
     Indication: Nausea
     Dosage: 125+80 MG, WEEKLY
     Route: 048
     Dates: start: 20221014, end: 20221111
  12. ONDANSETRON STADA [Concomitant]

REACTIONS (2)
  - Blood creatinine increased [Recovered/Resolved]
  - Febrile neutropenia [Recovered/Resolved]

NARRATIVE: CASE EVENT DATE: 20221101
